FAERS Safety Report 6427275-1 (Version None)
Quarter: 2009Q4

REPORT INFORMATION
  Report Type: 
  Country: None (occurrence: None)
  Receive Date: 20091104
  Receipt Date: 20091026
  Transmission Date: 20100525
  Serious: Yes (Other)
  Sender: FDA-Public Use
  Company Number: B0361598A

PATIENT
  Sex: Female

DRUGS (8)
  1. PAROXETINE HCL [Suspect]
     Route: 065
     Dates: start: 19970429
  2. DIAZEPAM [Concomitant]
     Dates: start: 20020911
  3. VITAMIN [Concomitant]
  4. PROPRANOLOL [Concomitant]
  5. ST JOHNS WORT [Concomitant]
  6. INDERAL LA [Concomitant]
  7. EFFEXOR XR [Concomitant]
     Dosage: 75MG PER DAY
  8. DIOVAN [Concomitant]

REACTIONS (26)
  - AGORAPHOBIA [None]
  - ANXIETY [None]
  - DEPRESSED MOOD [None]
  - DIZZINESS [None]
  - DRUG HYPERSENSITIVITY [None]
  - ECZEMA [None]
  - EMOTIONAL DISTRESS [None]
  - HAEMORRHAGIC DIATHESIS [None]
  - HEART RATE INCREASED [None]
  - IRRITABILITY [None]
  - NAUSEA [None]
  - PANIC ATTACK [None]
  - PANIC REACTION [None]
  - PARANOIA [None]
  - PHOTOSENSITIVITY REACTION [None]
  - PREGNANCY [None]
  - PSYCHIATRIC SYMPTOM [None]
  - PURPURA [None]
  - RASH [None]
  - SELF ESTEEM DECREASED [None]
  - SLEEP DISORDER [None]
  - SOCIAL PHOBIA [None]
  - SUICIDAL IDEATION [None]
  - TENSION HEADACHE [None]
  - VASCULITIS [None]
  - WITHDRAWAL SYNDROME [None]
